FAERS Safety Report 4636473-9 (Version None)
Quarter: 2005Q2

REPORT INFORMATION
  Report Type: 
  Country: None (occurrence: None)
  Receive Date: 20050413
  Receipt Date: 20050413
  Transmission Date: 20051028
  Serious: Yes (Other)
  Sender: FDA-Public Use
  Company Number: None

PATIENT
  Age: 40 Year
  Sex: Male

DRUGS (3)
  1. BUPROPRION 100 MG EON [Suspect]
     Indication: DISEASE RECURRENCE
     Dates: start: 20040101, end: 20050410
  2. BUPROPRION 100 MG EON [Suspect]
     Indication: MAJOR DEPRESSION
     Dates: start: 20040101, end: 20050410
  3. BUPROPRION 150 MG EON [Suspect]

REACTIONS (2)
  - DRUG INEFFECTIVE [None]
  - PHARMACEUTICAL PRODUCT COMPLAINT [None]
